FAERS Safety Report 5914882-5 (Version None)
Quarter: 2008Q4

REPORT INFORMATION
  Report Type: 
  Country: None (occurrence: None)
  Receive Date: 20081010
  Receipt Date: 20081003
  Transmission Date: 20090506
  Serious: Yes (Other)
  Sender: FDA-Public Use
  Company Number: PHBS2008AT05919

PATIENT
  Age: 40 Year
  Sex: Female

DRUGS (2)
  1. DICLOFENAC [Suspect]
  2. IBUPROFEN [Suspect]

REACTIONS (12)
  - ACUTE GENERALISED EXANTHEMATOUS PUSTULOSIS [None]
  - ANTINUCLEAR ANTIBODY INCREASED [None]
  - ARTHROPATHY [None]
  - BLOOD IMMUNOGLOBULIN A INCREASED [None]
  - LEUKOPENIA [None]
  - LYMPHOCYTIC INFILTRATION [None]
  - PHOTOSENSITIVITY REACTION [None]
  - RASH ERYTHEMATOUS [None]
  - RASH PUSTULAR [None]
  - RHEUMATOID FACTOR POSITIVE [None]
  - SYSTEMIC LUPUS ERYTHEMATOSUS [None]
  - URTICARIA [None]
